FAERS Safety Report 25377380 (Version 1)
Quarter: 2025Q2

REPORT INFORMATION
  Report Type: Spontaneous
  Country: BH (occurrence: BH)
  Receive Date: 20250530
  Receipt Date: 20250530
  Transmission Date: 20250716
  Serious: Yes (Other)
  Sender: RANBAXY
  Company Number: BH-SUN PHARMACEUTICAL INDUSTRIES LTD-2025RR-509540

PATIENT
  Age: 65 Year
  Sex: Male

DRUGS (6)
  1. AMIODARONE [Suspect]
     Active Substance: AMIODARONE
     Indication: Ventricular tachycardia
     Route: 048
  2. AMIODARONE [Suspect]
     Active Substance: AMIODARONE
     Indication: Heart failure with reduced ejection fraction
     Dosage: 150 MILLIGRAM, BID
     Route: 065
  3. AMIODARONE [Suspect]
     Active Substance: AMIODARONE
     Dosage: 300 MILLIGRAM, BID
     Route: 048
  4. AMIODARONE [Suspect]
     Active Substance: AMIODARONE
     Dosage: 400 MILLIGRAM, TID
     Route: 048
  5. ASPIRIN [Suspect]
     Active Substance: ASPIRIN
     Indication: Abdominal pain upper
     Route: 048
  6. ASPIRIN [Suspect]
     Active Substance: ASPIRIN
     Route: 048

REACTIONS (2)
  - Drug ineffective [Recovering/Resolving]
  - Therapy cessation [Recovered/Resolved]
